FAERS Safety Report 4678705-7 (Version None)
Quarter: 2005Q2

REPORT INFORMATION
  Report Type: 
  Country: None (occurrence: None)
  Receive Date: 20050531
  Receipt Date: 20050518
  Transmission Date: 20051028
  Serious: Yes (Other)
  Sender: FDA-Public Use
  Company Number: 2005077537

PATIENT
  Age: 14 Year
  Sex: Female

DRUGS (1)
  1. DRAMAMINE [Suspect]
     Indication: EUPHORIC MOOD
     Dosage: 24 TABLETS ONCE, ORAL
     Route: 048

REACTIONS (3)
  - EUPHORIC MOOD [None]
  - HALLUCINATION [None]
  - INTENTIONAL MISUSE [None]
